FAERS Safety Report 8440068 (Version 4)
Quarter: 2012Q4

REPORT INFORMATION
  Report Type: Spontaneous
  Country: US (occurrence: None)
  Receive Date: 20120222
  Receipt Date: 20120817
  Transmission Date: 20130627
  Serious: Yes (Other)
  Sender: FDA-Public Use
  Company Number: AUR-APL-2012-00953

PATIENT
  Age: 45 Year
  Sex: Female

DRUGS (2)
  1. SERTRALINE HYDROCHLORIDE [Suspect]
     Indication: ANXIETY
     Dosage: (100 MG,1 D),ORAL
     Route: 048
  2. PROTONIX [Concomitant]

REACTIONS (1)
  - DRUG INEFFECTIVE [None]
